FAERS Safety Report 5135342-8 (Version None)
Quarter: 2006Q4

REPORT INFORMATION
  Report Type: 
  Country: None (occurrence: None)
  Receive Date: 20061026
  Receipt Date: 20051229
  Transmission Date: 20070319
  Serious: No
  Sender: FDA-Public Use
  Company Number: US-GLAXOSMITHKLINE-A0587341A

PATIENT
  Age: 19 Year
  Sex: Female

DRUGS (2)
  1. IMITREX [Suspect]
     Indication: MIGRAINE
     Dosage: 1SPR AS REQUIRED
     Route: 045
     Dates: start: 20051225, end: 20051225
  2. NO CONCURRENT MEDICATION [Concomitant]

REACTIONS (3)
  - DYSGEUSIA [None]
  - NASAL DISCOMFORT [None]
  - THROAT IRRITATION [None]
